FAERS Safety Report 6432178-2 (Version None)
Quarter: 2009Q4

REPORT INFORMATION
  Report Type: 
  Country: None (occurrence: None)
  Receive Date: 20091109
  Receipt Date: 20091030
  Transmission Date: 20100525
  Serious: Yes (Hospitalization, Disabling)
  Sender: FDA-Public Use
  Company Number: JP-NOVOPROD-287572

PATIENT
  Age: 14 Year
  Sex: Male
  Weight: 27 kg

DRUGS (6)
  1. NORDITROPIN NORDIFLEX [Suspect]
     Indication: GROWTH HORMONE DEFICIENCY
     Dosage: 4.8 MG, QW
     Route: 058
     Dates: start: 20070730, end: 20090515
  2. DESMOPRESSIN ACETATE [Concomitant]
     Dosage: 10 UG, QD
     Route: 045
     Dates: start: 20061125
  3. PRIMOBOLAN                         /00044803/ [Concomitant]
     Dosage: 5 MG, BIW
     Route: 048
     Dates: start: 20080906
  4. METLIGINE [Concomitant]
     Indication: ORTHOSTATIC HYPERTENSION
     Dosage: 100 MG, QD
     Route: 048
     Dates: start: 20080724
  5. GRANDAXIN [Concomitant]
     Indication: AUTONOMIC NERVOUS SYSTEM IMBALANCE
     Dosage: 100 MG, QD
     Route: 048
     Dates: start: 20080906
  6. THYRADIN S [Concomitant]
     Dosage: 50 UG, QD
     Route: 048
     Dates: start: 20080724

REACTIONS (1)
  - CNS GERMINOMA [None]
